FAERS Safety Report 11594602 (Version 1)
Quarter: 2015Q4

REPORT INFORMATION
  Report Type: Spontaneous
  Country: US (occurrence: US)
  Receive Date: 20151005
  Receipt Date: 20151005
  Transmission Date: 20160304
  Serious: No
  Sender: FDA-Public Use
  Company Number: US-ELI_LILLY_AND_COMPANY-US201509004742

PATIENT
  Sex: Female

DRUGS (7)
  1. LABETALOL [Concomitant]
     Active Substance: LABETALOL\LABETALOL HYDROCHLORIDE
  2. KLONOPIN [Concomitant]
     Active Substance: CLONAZEPAM
     Dosage: UNK, PRN
  3. ASPIRIN                            /00002701/ [Concomitant]
     Active Substance: ASPIRIN
     Dosage: UNK
  4. EFFIENT [Suspect]
     Active Substance: PRASUGREL HYDROCHLORIDE
     Indication: STENT PLACEMENT
     Dosage: 10 MG, QD
     Route: 048
     Dates: start: 201506
  5. TYLENOL [Concomitant]
     Active Substance: ACETAMINOPHEN
  6. NITROSTAT [Concomitant]
     Active Substance: NITROGLYCERIN
     Dosage: UNK, PRN
  7. GLIPIZIDE. [Concomitant]
     Active Substance: GLIPIZIDE

REACTIONS (7)
  - Respiratory rate increased [Unknown]
  - Wrong technique in product usage process [Unknown]
  - Hangover [Unknown]
  - Dysphonia [Unknown]
  - Somnolence [Unknown]
  - Dysstasia [Unknown]
  - Respiration abnormal [Unknown]
